FAERS Safety Report 10518337 (Version 1)
Quarter: 2014Q4

REPORT INFORMATION
  Report Type: Spontaneous
  Country: US (occurrence: None)
  Receive Date: 20141014
  Receipt Date: 20141014
  Transmission Date: 20150528
  Serious: Yes (Hospitalization)
  Sender: FDA-Public Use
  Company Number: None

PATIENT
  Age: 69 Year
  Sex: Male
  Weight: 105.5 kg

DRUGS (1)
  1. ENOXAPARIN [Suspect]
     Active Substance: ENOXAPARIN
     Dosage: ML BID SQ
     Route: 058
     Dates: start: 20140707

REACTIONS (2)
  - Myalgia [None]
  - Haematoma [None]

NARRATIVE: CASE EVENT DATE: 20140707
